FAERS Safety Report 4444648-7 (Version None)
Quarter: 2004Q3

REPORT INFORMATION
  Report Type: 
  Country: None (occurrence: None)
  Receive Date: 20040903
  Receipt Date: 20040823
  Transmission Date: 20050211
  Serious: Yes (Hospitalization)
  Sender: FDA-Public Use
  Company Number: 2004058806

PATIENT
  Age: 39 Year
  Sex: Female
  Weight: 60 kg

DRUGS (3)
  1. ZELDOX [Suspect]
     Indication: SCHIZOPHRENIA, PARANOID TYPE
     Dosage: 40 MG (40 MG, 1 IN 1 D), ORAL
     Route: 048
     Dates: start: 20040301, end: 20040315
  2. OXAZEPAM [Concomitant]
  3. ZOPICLONE (ZOPLICONE) [Concomitant]

REACTIONS (2)
  - BUCCOGLOSSAL SYNDROME [None]
  - DYSKINESIA [None]
